FAERS Safety Report 23217940 (Version 1)
Quarter: 2023Q4

REPORT INFORMATION
  Report Type: Spontaneous
  Country: JP (occurrence: JP)
  Receive Date: 20231122
  Receipt Date: 20231122
  Transmission Date: 20240110
  Serious: Yes (Hospitalization)
  Sender: FDA-Public Use
  Company Number: JP-MYE-2023M1123565AA

PATIENT
  Age: 74 Year
  Sex: Female

DRUGS (5)
  1. OLANZAPINE [Suspect]
     Active Substance: OLANZAPINE
     Indication: Depression
     Dosage: 5 MILLIGRAM, QD
     Route: 065
  2. MAPROTILINE [Suspect]
     Active Substance: MAPROTILINE
     Indication: Depression
     Dosage: UNK
     Route: 065
  3. SULPIRIDE [Suspect]
     Active Substance: SULPIRIDE
     Indication: Depression
     Dosage: UNK
     Route: 065
  4. AMOXAPINE [Suspect]
     Active Substance: AMOXAPINE
     Indication: Depression
     Dosage: UNK
     Route: 065
  5. AMOXAPINE [Suspect]
     Active Substance: AMOXAPINE
     Dosage: 70 MILLIGRAM, QD
     Route: 065

REACTIONS (2)
  - Neuroleptic malignant syndrome [Recovering/Resolving]
  - Drug ineffective [Unknown]
